FAERS Safety Report 8840775 (Version 1)
Quarter: 2012Q4

REPORT INFORMATION
  Report Type: 
  Country: JP (occurrence: JP)
  Receive Date: 20121015
  Receipt Date: 20121015
  Transmission Date: 20130627
  Serious: Yes (Other)
  Sender: FDA-Public Use
  Company Number: PHHY2011JP117364

PATIENT
  Age: 77 Year
  Sex: Male

DRUGS (13)
  1. PRAVASTATIN [Suspect]
     Indication: HYPERCHOLESTEROLAEMIA
     Dates: start: 200902
  2. DEXAMETHASONE [Suspect]
     Dates: start: 200908, end: 201008
  3. DEXAMETHASONE [Suspect]
     Dates: start: 20101108
  4. LENALIDOMIDE [Suspect]
     Dosage: 25 mg daily
     Route: 048
     Dates: start: 20101108
  5. MELPHALAN [Concomitant]
  6. PREDNISOLONE [Concomitant]
  7. THALIDOMIDE [Concomitant]
     Dates: start: 200908, end: 201008
  8. ALLOPURINOL [Concomitant]
  9. MECOBALAMIN [Concomitant]
  10. SULFAMETHOXAZOLE W/TRIMETHOPRIM [Concomitant]
  11. BROTIZOLAM [Concomitant]
  12. WARFARIN [Concomitant]
  13. FLUCONAZOLE [Concomitant]

REACTIONS (9)
  - Rhabdomyolysis [Recovered/Resolved]
  - Syncope [Recovered/Resolved]
  - Myalgia [Recovered/Resolved]
  - Muscular weakness [Recovered/Resolved]
  - Abasia [Recovered/Resolved]
  - Pyrexia [Recovered/Resolved]
  - Blood creatine phosphokinase increased [Recovered/Resolved]
  - Myoglobinuria [Recovered/Resolved]
  - Renal impairment [Recovered/Resolved]
